FAERS Safety Report 6897364-6 (Version None)
Quarter: 2010Q3

REPORT INFORMATION
  Report Type: 
  Country: None (occurrence: None)
  Receive Date: 20100802
  Receipt Date: 20070529
  Transmission Date: 20110219
  Serious: Yes (Other)
  Sender: FDA-Public Use
  Company Number: US-PFIZER INC-2007033730

PATIENT
  Sex: Male
  Weight: 81.818 kg

DRUGS (9)
  1. LYRICA [Suspect]
     Indication: NEUROPATHY PERIPHERAL
     Route: 048
     Dates: start: 20070301
  2. NEXIUM [Concomitant]
  3. CLONIDINE [Concomitant]
  4. TOPROL-XL [Concomitant]
  5. DILTIAZEM [Concomitant]
     Indication: BLOOD PRESSURE
  6. XANAX [Concomitant]
     Indication: PANIC ATTACK
  7. SOMA [Concomitant]
  8. OXYCODONE [Concomitant]
     Indication: PAIN
  9. TEMAZEPAM [Concomitant]

REACTIONS (2)
  - VISION BLURRED [None]
  - VISUAL IMPAIRMENT [None]
